FAERS Safety Report 9687705 (Version 5)
Quarter: 2014Q2

REPORT INFORMATION
  Report Type: Spontaneous
  Country: US (occurrence: US)
  Receive Date: 20131114
  Receipt Date: 20140415
  Transmission Date: 20141212
  Serious: No
  Sender: FDA-Public Use
  Company Number: US-PFIZER INC-2013321162

PATIENT
  Age: 62 Year
  Sex: Male

DRUGS (2)
  1. INLYTA [Suspect]
     Indication: RENAL CANCER
     Dosage: 3 MG, 2X/DAY (3 BID)
     Dates: start: 20130220
  2. INLYTA [Suspect]
     Dosage: 1 MG, UNK
     Dates: start: 20131018

REACTIONS (6)
  - Pain [Unknown]
  - Rash [Unknown]
  - Dermatitis infected [Unknown]
  - Headache [Unknown]
  - Nausea [Unknown]
  - Blister [Unknown]
